FAERS Safety Report 8881052 (Version 2)
Quarter: 2012Q4

REPORT INFORMATION
  Report Type: 
  Country: JP (occurrence: JP)
  Receive Date: 20121101
  Receipt Date: 20121215
  Transmission Date: 20130627
  Serious: Yes (Hospitalization)
  Sender: FDA-Public Use
  Company Number: JP-009507513-1210JPN013822

PATIENT
  Age: 60 Year
  Sex: Male
  Weight: 73 kg

DRUGS (10)
  1. PEGINTRON [Suspect]
     Indication: CHRONIC HEPATITIS C
     Dosage: 1.5 Microgram per kilogram, qw
     Route: 058
     Dates: start: 20120822
  2. REBETOL [Suspect]
     Indication: CHRONIC HEPATITIS C
     Dosage: 800 mg, UNK
     Route: 048
     Dates: start: 20120822, end: 20120912
  3. REBETOL [Suspect]
     Dosage: 400 mg, UNK
     Route: 048
     Dates: start: 20120912, end: 20121004
  4. REBETOL [Suspect]
     Dosage: 600 UNK, UNK
     Route: 048
     Dates: start: 20121005, end: 20121009
  5. REBETOL [Suspect]
     Dosage: 800 mg, qd
     Route: 048
     Dates: start: 20121010
  6. TELAVIC [Suspect]
     Indication: CHRONIC HEPATITIS C
     Dosage: 2250 mg, qd
     Route: 048
     Dates: start: 20120822, end: 20120924
  7. TELAVIC [Suspect]
     Dosage: 1500 UNK, qd
     Route: 048
     Dates: start: 20120924, end: 20120926
  8. SELBEX [Concomitant]
     Indication: GASTRITIS
     Dosage: 150 mg, UNK
     Route: 048
     Dates: start: 20120831
  9. MYSLEE [Concomitant]
     Indication: INSOMNIA
     Dosage: 5 mg, prn
     Route: 048
     Dates: start: 20120911
  10. MYSLEE [Concomitant]
     Dosage: UNK
     Route: 048

REACTIONS (2)
  - Drug eruption [Unknown]
  - Drug eruption [Recovering/Resolving]
